FAERS Safety Report 10357772 (Version 1)
Quarter: 2014Q3

REPORT INFORMATION
  Report Type: Spontaneous
  Country: JP (occurrence: JP)
  Receive Date: 20140801
  Receipt Date: 20140801
  Transmission Date: 20150326
  Serious: Yes (Other)
  Sender: FDA-Public Use
  Company Number: PHHY2011JP121461

PATIENT
  Age: 78 Year
  Sex: Female

DRUGS (3)
  1. GLIVEC [Suspect]
     Active Substance: IMATINIB MESYLATE
     Dosage: 200 MG, UNK
  2. DASATINIB [Suspect]
     Active Substance: DASATINIB
     Dosage: 50 MG, PER DAY
  3. TASIGNA [Suspect]
     Active Substance: NILOTINIB
     Indication: CHRONIC MYELOID LEUKAEMIA
     Dosage: 400 MG, DAILY

REACTIONS (3)
  - Oedema [Unknown]
  - Deep vein thrombosis [Unknown]
  - Large intestinal haemorrhage [Unknown]
